FAERS Safety Report 8301371 (Version 2)
Quarter: 2012Q4

REPORT INFORMATION
  Report Type: 
  Country: US (occurrence: US)
  Receive Date: 20111219
  Receipt Date: 20121026
  Transmission Date: 20130627
  Serious: No
  Sender: FDA-Public Use
  Company Number: US-ASTRAZENECA-2011SE63292

PATIENT
  Age: 82 Year
  Sex: Female
  Weight: 59.9 kg

DRUGS (2)
  1. CRESTOR [Suspect]
     Indication: BLOOD CHOLESTEROL ABNORMAL
     Route: 048
     Dates: start: 20090626, end: 20100323
  2. RECLAST [Concomitant]
     Indication: OSTEOPOROSIS

REACTIONS (2)
  - Arthritis [Unknown]
  - Neck pain [Unknown]
